FAERS Safety Report 8319441-5 (Version None)
Quarter: 2012Q2

REPORT INFORMATION
  Report Type: 
  Country: None (occurrence: None)
  Receive Date: 20120427
  Receipt Date: 20120413
  Transmission Date: 20120825
  Serious: Yes (Hospitalization, Other)
  Sender: FDA-Public Use
  Company Number: US-MYLANLABS-2009AC000074

PATIENT
  Age: 84 Year
  Sex: Female
  Weight: 48.99 kg

DRUGS (11)
  1. NITROGLYCERIN [Concomitant]
  2. CALCIUM CARBONATE [Concomitant]
  3. DIGOXIN [Suspect]
     Route: 048
     Dates: start: 20050101, end: 20080101
  4. CIPROFLOXACIN HCL [Concomitant]
     Route: 048
  5. FUROSEMIDE [Concomitant]
     Route: 048
  6. DILTIAZEM [Concomitant]
     Route: 048
  7. AZITHROMYCIN [Concomitant]
  8. PREMARIN [Concomitant]
     Route: 048
  9. PROTONIX [Concomitant]
  10. COUMADIN [Concomitant]
     Route: 048
  11. DULCOLAX [Concomitant]

REACTIONS (49)
  - ECONOMIC PROBLEM [None]
  - DIZZINESS [None]
  - CONJUNCTIVAL HAEMORRHAGE [None]
  - LABORATORY TEST ABNORMAL [None]
  - ILL-DEFINED DISORDER [None]
  - RIGHT VENTRICULAR SYSTOLIC PRESSURE INCREASED [None]
  - CARDIAC FAILURE CONGESTIVE [None]
  - VOMITING [None]
  - GASTROINTESTINAL DISORDER [None]
  - MELANOSIS COLI [None]
  - ELECTROCARDIOGRAM ABNORMAL [None]
  - COLITIS [None]
  - ECHOCARDIOGRAM ABNORMAL [None]
  - HEART RATE IRREGULAR [None]
  - KYPHOSIS [None]
  - X-RAY ABNORMAL [None]
  - DYSPNOEA [None]
  - COLONIC POLYP [None]
  - NAUSEA [None]
  - HEADACHE [None]
  - NUCLEAR MAGNETIC RESONANCE IMAGING ABNORMAL [None]
  - PALPITATIONS [None]
  - DIARRHOEA [None]
  - MALAISE [None]
  - HYPERTENSION [None]
  - VISUAL ACUITY REDUCED [None]
  - LEFT VENTRICULAR HYPERTROPHY [None]
  - SYNCOPE [None]
  - BALANCE DISORDER [None]
  - URINARY TRACT INFECTION [None]
  - CARDIAC VALVE DISEASE [None]
  - HYPOKALAEMIA [None]
  - CARDIAC STRESS TEST ABNORMAL [None]
  - GASTROENTERITIS [None]
  - PARAESTHESIA [None]
  - INJURY [None]
  - ATRIAL FIBRILLATION [None]
  - CHEST PAIN [None]
  - DEHYDRATION [None]
  - PROTHROMBIN TIME PROLONGED [None]
  - MITRAL VALVE INCOMPETENCE [None]
  - ASTHENIA [None]
  - GRANULOMA [None]
  - OSTEOPENIA [None]
  - SINUSITIS [None]
  - ANGINA PECTORIS [None]
  - HAEMORRHOIDS [None]
  - HYDROCEPHALUS [None]
  - MEMORY IMPAIRMENT [None]
